FAERS Safety Report 8920615 (Version 1)
Quarter: 2012Q4

REPORT INFORMATION
  Report Type: 
  Country: FR (occurrence: FR)
  Receive Date: 20121122
  Receipt Date: 20121122
  Transmission Date: 20130627
  Serious: Yes (Hospitalization)
  Sender: FDA-Public Use
  Company Number: FR-ACTELION-A-CH2012-74315

PATIENT
  Age: 74 Year
  Sex: Female

DRUGS (8)
  1. TRACLEER [Suspect]
     Indication: PULMONARY ARTERIAL HYPERTENSION
     Dosage: 62.5 mg, bid
     Route: 048
     Dates: start: 20120913, end: 20121007
  2. CRESTOR [Suspect]
     Dosage: UNK
     Dates: start: 201207, end: 201210
  3. KARDEGIC [Concomitant]
     Dosage: 75 UNK, od
  4. PLAVIX [Concomitant]
     Dosage: 75 UNK, od
  5. PREDNISONE [Concomitant]
     Dosage: UNK
  6. LYRICA [Concomitant]
     Dosage: 125 UNK, bid
  7. COVERSYL [Concomitant]
     Dosage: 2.5 UNK, od
  8. CHRONADALATE [Concomitant]
     Dosage: 30 UNK, od

REACTIONS (12)
  - Hepatitis [Recovering/Resolving]
  - Hepatocellular injury [Recovering/Resolving]
  - Cholestasis [Recovering/Resolving]
  - Aspartate aminotransferase increased [Recovering/Resolving]
  - Alanine aminotransferase increased [Recovering/Resolving]
  - Blood alkaline phosphatase increased [Recovering/Resolving]
  - Bilirubin conjugated increased [Recovering/Resolving]
  - Pyrexia [Recovering/Resolving]
  - Nausea [Unknown]
  - Headache [Unknown]
  - Culture urine positive [Unknown]
  - Dysuria [Unknown]
